FAERS Safety Report 7714581-3 (Version None)
Quarter: 2011Q3

REPORT INFORMATION
  Report Type: 
  Country: None (occurrence: None)
  Receive Date: 20110829
  Receipt Date: 20110826
  Transmission Date: 20111222
  Serious: No
  Sender: FDA-Public Use
  Company Number: US-PFIZER INC-2011199688

PATIENT
  Sex: Female
  Weight: 129 kg

DRUGS (12)
  1. ACETYLSALICYLIC ACID [Concomitant]
     Indication: CARDIAC DISORDER
     Dosage: 81 MG, DAILY
  2. CRESTOR [Concomitant]
     Dosage: 10 MG, DAILY
  3. CHANTIX [Suspect]
     Indication: SMOKING CESSATION THERAPY
     Dosage: 0.5 MG, DAILY
     Route: 048
     Dates: start: 20110824
  4. NITROFURANTOIN [Concomitant]
     Dosage: 100 MG, 2X/DAY
  5. DETROL [Concomitant]
     Dosage: 4 MG, DAILY
  6. LIRAGLUTIDE (NN2211) [Concomitant]
     Dosage: 1.8 MG, DAILY
  7. RANITIDINE [Concomitant]
     Indication: HYPERCHLORHYDRIA
     Dosage: 300 MG, 2X/DAY
  8. METFORMIN HCL/PIOGLITAZONE HCL [Concomitant]
     Dosage: 15 MG, 2X/DAY
  9. LANTUS [Concomitant]
     Dosage: 45 IU, UNK
  10. NEXIUM [Concomitant]
     Indication: HYPERCHLORHYDRIA
     Dosage: 40 MG, 2X/DAY
  11. LYRICA [Concomitant]
     Dosage: 75 MG, 2X/DAY
  12. VALSARTAN [Concomitant]
     Indication: BLOOD PRESSURE ABNORMAL
     Dosage: 160 MG, DAILY

REACTIONS (1)
  - NAUSEA [None]
